FAERS Safety Report 18195177 (Version 1)
Quarter: 2020Q3

REPORT INFORMATION
  Report Type: Not Available
  Country: DE (occurrence: DE)
  Receive Date: 20200825
  Receipt Date: 20200825
  Transmission Date: 20201103
  Serious: Yes (Hospitalization, Other)
  Sender: FDA-Public Use
  Company Number: DE-SYNTHON BV-IN51PV20_54948

PATIENT
  Age: 75 Year
  Sex: Male

DRUGS (19)
  1. AMIODARON [AMIODARONE] [Suspect]
     Active Substance: AMIODARONE
     Indication: PRODUCT USED FOR UNKNOWN INDICATION
     Dosage: 20 MILLIGRAM, 1?0?0?0
     Route: 065
  2. RAMIPRIL. [Suspect]
     Active Substance: RAMIPRIL
     Indication: PRODUCT USED FOR UNKNOWN INDICATION
     Dosage: 5 MILLIGRAM, 0?0?1?0
     Route: 065
  3. TORASEMID [Suspect]
     Active Substance: TORSEMIDE
     Indication: PRODUCT USED FOR UNKNOWN INDICATION
     Dosage: 10 MILLIGRAM, 5?3?0?0
     Route: 065
  4. FINASTERID [Concomitant]
     Active Substance: FINASTERIDE
     Dosage: 5 MILLIGRAM, 1?0?0?0, 1 DAY
  5. APIXABAN [Concomitant]
     Active Substance: APIXABAN
     Dosage: 5 MILLIGRAM, 1?0?1?0, 1 DAY
  6. METFORMIN [Suspect]
     Active Substance: METFORMIN HYDROCHLORIDE
     Indication: PRODUCT USED FOR UNKNOWN INDICATION
     Dosage: 1000 MILLIGRAM, 1?0?0?0
     Route: 065
  7. TORASEMID [Suspect]
     Active Substance: TORSEMIDE
     Dosage: 10 MILLIGRAM, 3X, 8 HOURS
     Route: 065
  8. STEGLUJAN [Concomitant]
     Active Substance: ERTUGLIFLOZIN PIDOLATE\SITAGLIPTIN PHOSPHATE
     Dosage: 5/100 MG, 1?0?0?0
  9. RASAGILIN [Concomitant]
     Active Substance: RASAGILINE MESYLATE
     Dosage: 1 MILLIGRAM, 3X, 8 HOURS
  10. SALBUTAMOL [Concomitant]
     Active Substance: ALBUTEROL
     Dosage: NK MG, 3X
  11. TAMSULOSIN [Suspect]
     Active Substance: TAMSULOSIN
     Indication: PRODUCT USED FOR UNKNOWN INDICATION
     Dosage: 0.4 MILLIGRAM, 0?0?1?0
     Route: 065
  12. AMANTADIN [AMANTADINE] [Concomitant]
     Active Substance: AMANTADINE
     Dosage: 100 MILLIGRAM, 1X, 1 DAY
  13. ALLOPURINOL. [Concomitant]
     Active Substance: ALLOPURINOL
     Dosage: 300 MILLIGRAM, 0.5?0?0?0, 1 DAY
  14. AIRFLUSAL [Suspect]
     Active Substance: FLUTICASONE FUROATE\SALMETEROL XINAFOATE
     Indication: PRODUCT USED FOR UNKNOWN INDICATION
     Dosage: NK MG, 3X
     Route: 065
  15. CARVEDILOL. [Suspect]
     Active Substance: CARVEDILOL
     Indication: PRODUCT USED FOR UNKNOWN INDICATION
     Dosage: 6.25 MG, 2?0?0?0
     Route: 065
  16. LEVOTHYROXINENATRIUM TEVA [Concomitant]
     Dosage: 100 MICROGRAM, 1?0?0?0, 1 DAY
  17. RASAGILIN [Concomitant]
     Active Substance: RASAGILINE MESYLATE
     Dosage: UNK
  18. PRAMIPEXOL [PRAMIPEXOLE] [Concomitant]
     Active Substance: PRAMIPEXOLE
     Dosage: 3.15 MILLIGRAM, 1?0?0?0
  19. MIRTAZAPIN [Concomitant]
     Active Substance: MIRTAZAPINE
     Dosage: 15 MILLIGRAM, 0?0?0?0.5, 1 DAY

REACTIONS (2)
  - Dyspnoea [Unknown]
  - Bradycardia [Unknown]

NARRATIVE: CASE EVENT DATE: 20200522
